FAERS Safety Report 7157714-2 (Version None)
Quarter: 2010Q4

REPORT INFORMATION
  Report Type: 
  Country: None (occurrence: None)
  Receive Date: 20101214
  Receipt Date: 20100128
  Transmission Date: 20110411
  Serious: No
  Sender: FDA-Public Use
  Company Number: US-ASTRAZENECA-2010SE03992

PATIENT
  Age: 52 Year
  Sex: Male
  Weight: 79.4 kg

DRUGS (2)
  1. CRESTOR [Suspect]
     Route: 048
  2. COLD REMEDY NASAL GEL [Suspect]

REACTIONS (1)
  - ANOSMIA [None]
